FAERS Safety Report 7834149-8 (Version None)
Quarter: 2011Q4

REPORT INFORMATION
  Report Type: 
  Country: None (occurrence: None)
  Receive Date: 20111024
  Receipt Date: 20111012
  Transmission Date: 20120403
  Serious: Yes (Other)
  Sender: FDA-Public Use
  Company Number: PHFR2011IE05481

PATIENT
  Sex: Male

DRUGS (1)
  1. CLOZARIL [Suspect]
     Route: 048
     Dates: start: 20110309, end: 20110823

REACTIONS (3)
  - PSYCHOTIC DISORDER [None]
  - SEDATION [None]
  - URINARY INCONTINENCE [None]
